FAERS Safety Report 18231412 (Version 1)
Quarter: 2020Q3

REPORT INFORMATION
  Report Type: Spontaneous
  Country: IT (occurrence: IT)
  Receive Date: 20200904
  Receipt Date: 20200904
  Transmission Date: 20201103
  Serious: Yes (Other)
  Sender: FDA-Public Use
  Company Number: IT-ASTRAZENECA-2020SF10452

PATIENT
  Age: 29 Year
  Sex: Female

DRUGS (4)
  1. FLUIFORT (CARBOCISTEINE LYSINE) [Suspect]
     Active Substance: CARBOCYSTEINE LYSINE
     Indication: DRUG ABUSE
     Dosage: 5.4G ONCE/SINGLE ADMINISTRATION
     Route: 048
     Dates: start: 20200712, end: 20200712
  2. KETODOL (KETOPROFEN\SUCRALFATE) [Suspect]
     Active Substance: KETOPROFEN\SUCRALFATE
     Indication: DRUG ABUSE
     Dosage: 6.0DF ONCE/SINGLE ADMINISTRATION
     Route: 048
     Dates: start: 20200712, end: 20200712
  3. OKI [Suspect]
     Active Substance: KETOPROFEN LYSINE
     Indication: DRUG ABUSE
     Dosage: 160.0MG ONCE/SINGLE ADMINISTRATION
     Route: 048
     Dates: start: 20200712, end: 20200712
  4. ESOMEPRAZOLE SODIUM. [Suspect]
     Active Substance: ESOMEPRAZOLE SODIUM
     Indication: DRUG ABUSE
     Dosage: 140.0MG ONCE/SINGLE ADMINISTRATION
     Route: 048
     Dates: start: 20200712, end: 20200712

REACTIONS (3)
  - Abdominal pain [Recovering/Resolving]
  - Psychomotor hyperactivity [Recovering/Resolving]
  - Drug abuse [Recovering/Resolving]

NARRATIVE: CASE EVENT DATE: 20200712
